FAERS Safety Report 11275671 (Version 3)
Quarter: 2015Q4

REPORT INFORMATION
  Report Type: Report from Study
  Country: US (occurrence: US)
  Receive Date: 20150716
  Receipt Date: 20151210
  Transmission Date: 20160304
  Serious: Yes (Other)
  Sender: FDA-Public Use
  Company Number: PHEH2015US012900

PATIENT
  Age: 36 Year
  Sex: Male
  Weight: 90.7 kg

DRUGS (1)
  1. GILENYA [Suspect]
     Active Substance: FINGOLIMOD HYDROCHLORIDE
     Indication: RELAPSING-REMITTING MULTIPLE SCLEROSIS
     Dosage: 0.5 MG, QD
     Route: 048
     Dates: start: 20150617

REACTIONS (12)
  - Polyuria [Unknown]
  - Paraesthesia [Unknown]
  - Dry mouth [Unknown]
  - Diabetes mellitus [Recovering/Resolving]
  - Polydipsia [Unknown]
  - Hypoaesthesia [Unknown]
  - Hyperglycaemia [Recovered/Resolved]
  - Concomitant disease aggravated [Recovered/Resolved]
  - Vision blurred [Unknown]
  - Drug dose omission [Unknown]
  - Visual acuity reduced [Recovering/Resolving]
  - Blindness transient [Recovering/Resolving]

NARRATIVE: CASE EVENT DATE: 20150626
